FAERS Safety Report 12307497 (Version 5)
Quarter: 2018Q3

REPORT INFORMATION
  Report Type: Spontaneous
  Country: US (occurrence: US)
  Receive Date: 20160426
  Receipt Date: 20180703
  Transmission Date: 20181010
  Serious: No
  Sender: FDA-Public Use
  Company Number: US-ALKERMES INC.-ALK-2015-000397

PATIENT
  Age: 40 Year
  Sex: Male
  Weight: 95.24 kg

DRUGS (5)
  1. AMBIEN [Concomitant]
     Active Substance: ZOLPIDEM TARTRATE
     Indication: SLEEP DISORDER
     Dosage: UNK
  2. VIVITROL [Suspect]
     Active Substance: NALTREXONE
     Indication: DRUG DEPENDENCE
     Dosage: 380 MG, QMO
     Route: 030
     Dates: start: 2014, end: 20170715
  3. KLONOPIN [Suspect]
     Active Substance: CLONAZEPAM
     Indication: DRUG WITHDRAWAL SYNDROME
     Dosage: UNK
     Route: 065
  4. KLONOPIN [Suspect]
     Active Substance: CLONAZEPAM
     Indication: WITHDRAWAL SYNDROME
  5. RITALIN [Concomitant]
     Active Substance: METHYLPHENIDATE HYDROCHLORIDE
     Indication: ATTENTION DEFICIT/HYPERACTIVITY DISORDER
     Dosage: UNK

REACTIONS (12)
  - Loss of consciousness [Recovered/Resolved]
  - Decreased appetite [Unknown]
  - Drug dose omission [Not Recovered/Not Resolved]
  - Dyspepsia [Unknown]
  - Movement disorder [Unknown]
  - Euphoric mood [Recovered/Resolved]
  - Drug dependence [Recovered/Resolved]
  - Restless legs syndrome [Unknown]
  - Diarrhoea [Unknown]
  - Drug withdrawal syndrome [Unknown]
  - Malaise [Recovered/Resolved]
  - Feeling abnormal [Unknown]

NARRATIVE: CASE EVENT DATE: 2015
